FAERS Safety Report 9381884 (Version 1)
Quarter: 2013Q3

REPORT INFORMATION
  Report Type: Spontaneous
  Country: JP (occurrence: JP)
  Receive Date: 20130703
  Receipt Date: 20130703
  Transmission Date: 20140515
  Serious: Yes (Death, Other)
  Sender: FDA-Public Use
  Company Number: PHHY2013JP068520

PATIENT
  Age: 76 Year
  Sex: Female

DRUGS (1)
  1. ETODOLAC [Suspect]
     Indication: SPINAL OSTEOARTHRITIS

REACTIONS (7)
  - Sepsis [Fatal]
  - Histiocytosis haematophagic [Unknown]
  - Toxic epidermal necrolysis [Unknown]
  - Rash [Unknown]
  - Oropharyngeal pain [Unknown]
  - Cough [Unknown]
  - Hepatic function abnormal [Not Recovered/Not Resolved]
